FAERS Safety Report 12254469 (Version 1)
Quarter: 2016Q2

REPORT INFORMATION
  Report Type: Spontaneous
  Country: FR (occurrence: FR)
  Receive Date: 20160411
  Receipt Date: 20160411
  Transmission Date: 20160815
  Serious: Yes (Death, Other)
  Sender: FDA-Public Use
  Company Number: FR-TEVA-648864ISR

PATIENT
  Age: 1 Year
  Sex: Male
  Weight: 9.24 kg

DRUGS (7)
  1. METHOTREXATE NOS [Concomitant]
     Active Substance: METHOTREXATE OR METHOTREXATE SODIUM
     Dosage: DAY 1, DAY 3 AND DAY 6
  2. URSOFALK [Concomitant]
     Active Substance: URSODIOL
     Indication: PROPHYLAXIS
  3. FLUDARABINE TEVA [Suspect]
     Active Substance: FLUDARABINE PHOSPHATE
     Indication: BONE MARROW CONDITIONING REGIMEN
     Dosage: DAY -7, DAY -6, DAY -5, DAY -3 BEFORE ALLOGRAFT
     Route: 042
     Dates: start: 20130409, end: 20130412
  4. THIOTEPA. [Suspect]
     Active Substance: THIOTEPA
     Indication: BONE MARROW CONDITIONING REGIMEN
     Dosage: DAY -6 BEFORE ALLOGRAFT
     Route: 042
     Dates: start: 20130408, end: 20130408
  5. BUSILVEX 6 MG/ML [Suspect]
     Active Substance: BUSULFAN
     Indication: BONE MARROW CONDITIONING REGIMEN
     Dosage: FROM DAY -5 TO DAY -2, WEIGHT-ADAPTED DOSAGE
     Route: 042
     Dates: start: 20130411, end: 20130414
  6. ANTI-THYMOCYTE GLOBULIN [Concomitant]
     Active Substance: THYMOCYTE IMMUNE GLOBULIN NOS
     Dosage: FROM DAY -3 TO DAY -1 BEFORE ALLOGRAFT
     Dates: start: 20130413, end: 20130415
  7. CICLOSPORIN NOS [Concomitant]
     Dosage: CONTINUOUS
     Route: 042

REACTIONS (2)
  - Graft versus host disease [Unknown]
  - Venoocclusive disease [Fatal]

NARRATIVE: CASE EVENT DATE: 201305
